FAERS Safety Report 8579704-5 (Version None)
Quarter: 2012Q3

REPORT INFORMATION
  Report Type: 
  Country: None (occurrence: None)
  Receive Date: 20120726
  Receipt Date: 20120710
  Transmission Date: 20120928
  Serious: Yes (Other)
  Sender: FDA-Public Use
  Company Number: PNIS20120019

PATIENT
  Age: 62 Year
  Sex: Female

DRUGS (6)
  1. ASPIRIN (ACETYLSALICYLIIC ACID) (ACETYLSALICYLIC ACID) [Concomitant]
  2. NICORDANDIL (NICORDANIL) (NICORDANIL) [Concomitant]
  3. ATORVASTATIN (ATORVASTATIN) (ATORVASTATIN) [Concomitant]
  4. ISOSORBIDE DINITRATE [Concomitant]
  5. PREDNISOLONE [Suspect]
     Indication: RHEUMATOID ARTHRITIS
     Dosage: 10 MG
  6. FOSAMAX [Suspect]
     Indication: OSTEOPOROSIS
     Dosage: 10 MG

REACTIONS (3)
  - INJURY ASSOCIATED WITH DEVICE [None]
  - OSTEONECROSIS OF JAW [None]
  - EXPOSED BONE IN JAW [None]
